FAERS Safety Report 21155032 (Version 1)
Quarter: 2022Q3

REPORT INFORMATION
  Report Type: Other
  Country: US (occurrence: None)
  Receive Date: 20220801
  Receipt Date: 20220801
  Transmission Date: 20221026
  Serious: Yes (Hospitalization, Other)
  Sender: FDA-Public Use
  Company Number: US-ROCHE-3145862

PATIENT
  Age: 37 Year
  Sex: Male
  Weight: 97.610 kg

DRUGS (3)
  1. OCREVUS [Suspect]
     Active Substance: OCRELIZUMAB
     Indication: Progressive multiple sclerosis
     Dosage: INFUSE 300MG DAY 1, INFUSE 300MG DAY 15, INFUSE 600MG EVERY 6 MONTHS.?DATE OF TREATMENT MENTIONED AR
     Route: 042
     Dates: start: 2021
  2. OCREVUS [Suspect]
     Active Substance: OCRELIZUMAB
     Indication: Multiple sclerosis
  3. AMANTADINE [Concomitant]
     Active Substance: AMANTADINE

REACTIONS (6)
  - Sepsis [Recovered/Resolved]
  - Infection [Recovered/Resolved]
  - Memory impairment [Not Recovered/Not Resolved]
  - Coordination abnormal [Not Recovered/Not Resolved]
  - Speech disorder [Not Recovered/Not Resolved]
  - Multiple sclerosis relapse [Unknown]

NARRATIVE: CASE EVENT DATE: 20210601
